FAERS Safety Report 16020745 (Version 1)
Quarter: 2019Q1

REPORT INFORMATION
  Report Type: Spontaneous
  Country: ES (occurrence: ES)
  Receive Date: 20190301
  Receipt Date: 20190301
  Transmission Date: 20190418
  Serious: Yes (Hospitalization)
  Sender: FDA-Public Use
  Company Number: ES-ACCORD-109774

PATIENT
  Age: 62 Year
  Sex: Male

DRUGS (6)
  1. PALIPERIDONE/PALIPERIDONE PALMITATE [Suspect]
     Active Substance: PALIPERIDONE
     Indication: ANXIETY
     Dosage: (0-0-1)
     Route: 048
     Dates: start: 20180724
  2. AMITRIPTYLINE [Suspect]
     Active Substance: AMITRIPTYLINE
     Indication: OBSESSIVE-COMPULSIVE DISORDER
     Dosage: FIRST YEAR WHERE IT IS FOUND IS 2003 75MG (0-0-1) UNTIL 24/07/2018 THAT GOES TO 25MG (0-0-1)
     Route: 048
     Dates: start: 2003
  3. OMEPRAZOLE. [Concomitant]
     Active Substance: OMEPRAZOLE
  4. HUMIRA [Concomitant]
     Active Substance: ADALIMUMAB
  5. SERTRALINE [Suspect]
     Active Substance: SERTRALINE HYDROCHLORIDE
     Indication: ANXIETY
     Dosage: HE BEGAN WITH (1-0-0) AND FROM 24.07.2018 (1-1-0),STRENGTH:50 MG
     Route: 048
     Dates: start: 20180423
  6. LEXATIN [Concomitant]
     Dosage: STRENGTH:3 MG

REACTIONS (1)
  - Hyponatraemia [Unknown]

NARRATIVE: CASE EVENT DATE: 201807
